FAERS Safety Report 8307714-1 (Version None)
Quarter: 2012Q2

REPORT INFORMATION
  Report Type: 
  Country: None (occurrence: None)
  Receive Date: 20120424
  Receipt Date: 20120417
  Transmission Date: 20120825
  Serious: Yes (Other)
  Sender: FDA-Public Use
  Company Number: US-VERTEX PHARMACEUTICALS INC.-AE-2012-002282

PATIENT
  Sex: Female

DRUGS (4)
  1. INCIVEK [Suspect]
     Indication: HEPATITIS C
     Route: 048
     Dates: start: 20120109, end: 20120326
  2. RIBAVIRIN [Concomitant]
     Indication: HEPATITIS C
     Route: 048
     Dates: start: 20120109, end: 20120417
  3. RIBAVIRIN [Concomitant]
     Dates: start: 20120128
  4. PEGASYS [Concomitant]
     Indication: HEPATITIS C
     Route: 058
     Dates: start: 20120109, end: 20120417

REACTIONS (7)
  - RASH GENERALISED [None]
  - ANAEMIA [None]
  - LIP SWELLING [None]
  - PHOTOSENSITIVITY REACTION [None]
  - FATIGUE [None]
  - DYSPNOEA [None]
  - RASH PRURITIC [None]
